FAERS Safety Report 7426820-7 (Version None)
Quarter: 2011Q2

REPORT INFORMATION
  Report Type: 
  Country: None (occurrence: None)
  Receive Date: 20110420
  Receipt Date: 20110415
  Transmission Date: 20111010
  Serious: Yes (Hospitalization)
  Sender: FDA-Public Use
  Company Number: IE-AMGEN-IRLSP2011020176

PATIENT
  Sex: Female

DRUGS (4)
  1. NEULASTA [Suspect]
     Indication: CHEMOTHERAPY
     Dosage: 6 MG, 3 TIMES/WK
     Route: 058
     Dates: start: 20090101
  2. CHEMOTHERAPEUTICS NOS [Concomitant]
  3. MS CONTIN [Concomitant]
  4. MAXOLON [Concomitant]

REACTIONS (1)
  - THROMBOSIS [None]
